FAERS Safety Report 6383257-X (Version None)
Quarter: 2009Q3

REPORT INFORMATION
  Report Type: 
  Country: None (occurrence: None)
  Receive Date: 20090929
  Receipt Date: 20090916
  Transmission Date: 20100115
  Serious: Yes (Death)
  Sender: FDA-Public Use
  Company Number: 8052172

PATIENT
  Sex: Male

DRUGS (3)
  1. KEPPRA [Suspect]
     Indication: CONVULSION
     Dosage: 500 MG /D PO
     Route: 048
     Dates: start: 20040101, end: 20090101
  2. TOPAMAX [Suspect]
     Dosage: PO
     Route: 048
     Dates: start: 20050101, end: 20090101
  3. ZOLOFT [Suspect]
     Indication: DEPRESSION
     Dosage: 50 MG /D PO
     Route: 048
     Dates: start: 20000301

REACTIONS (3)
  - ABNORMAL SLEEP-RELATED EVENT [None]
  - CONVULSION [None]
  - TREATMENT NONCOMPLIANCE [None]
